FAERS Safety Report 6793449-3 (Version None)
Quarter: 2010Q2

REPORT INFORMATION
  Report Type: 
  Country: None (occurrence: None)
  Receive Date: 20100624
  Receipt Date: 20100422
  Transmission Date: 20101027
  Serious: Yes (Other)
  Sender: FDA-Public Use
  Company Number: US-MYLANLABS-2010S1004407

PATIENT
  Age: 51 Year
  Sex: Female

DRUGS (10)
  1. CLOZAPINE [Suspect]
     Indication: SCHIZOPHRENIA
     Route: 048
     Dates: end: 20100316
  2. CLOZAPINE [Suspect]
     Route: 048
     Dates: start: 20100414
  3. LAMICTAL [Concomitant]
     Route: 048
  4. MIRALAX [Concomitant]
     Route: 048
  5. RESTORIL [Concomitant]
     Route: 048
  6. RISPERDAL CONSTA [Concomitant]
  7. DEPAKOTE ER [Concomitant]
     Route: 048
  8. KLONOPIN [Concomitant]
     Route: 048
  9. PLENDIL [Concomitant]
     Route: 048
  10. POTASSIUM [Concomitant]
     Route: 048

REACTIONS (1)
  - GRANULOCYTOPENIA [None]
